FAERS Safety Report 9003024 (Version 1)
Quarter: 2013Q1

REPORT INFORMATION
  Report Type: Spontaneous
  Country: US (occurrence: US)
  Receive Date: 20130108
  Receipt Date: 20130108
  Transmission Date: 20140127
  Serious: Yes (Death)
  Sender: FDA-Public Use
  Company Number: US-PFIZER INC-2013004330

PATIENT
  Age: 43 Year
  Sex: Male

DRUGS (6)
  1. FENTANYL [Suspect]
     Dosage: UNK
     Route: 062
  2. ALPRAZOLAM [Suspect]
     Dosage: UNK
  3. DEXTROMETHORPHAN [Suspect]
     Dosage: UNK
  4. PHENOBARBITAL [Suspect]
     Dosage: UNK
  5. LAMOTRIGINE [Suspect]
     Dosage: UNK
  6. CYCLOBENZAPRINE [Suspect]
     Dosage: UNK

REACTIONS (4)
  - Drug abuse [Fatal]
  - Cardiac arrest [Fatal]
  - Respiratory arrest [Fatal]
  - Toxicity to various agents [None]
